FAERS Safety Report 8255581-7 (Version None)
Quarter: 2012Q2

REPORT INFORMATION
  Report Type: 
  Country: None (occurrence: None)
  Receive Date: 20120403
  Receipt Date: 20120326
  Transmission Date: 20120825
  Serious: Yes (Other)
  Sender: FDA-Public Use
  Company Number: US-AMGEN-USASP2012019333

PATIENT
  Age: 33 Year
  Sex: Male

DRUGS (1)
  1. ENBREL [Suspect]
     Indication: PSORIASIS
     Dosage: 50 MG, UNK
     Dates: start: 20120301

REACTIONS (6)
  - INTESTINAL POLYP [None]
  - INJECTION SITE ERYTHEMA [None]
  - ANAL FISTULA [None]
  - INJECTION SITE HAEMATOMA [None]
  - CROHN'S DISEASE [None]
  - INJECTION SITE SWELLING [None]
